FAERS Safety Report 5508522-7 (Version None)
Quarter: 2007Q4

REPORT INFORMATION
  Report Type: 
  Country: None (occurrence: None)
  Receive Date: 20071105
  Receipt Date: 20071024
  Transmission Date: 20080405
  Serious: Yes (Hospitalization)
  Sender: FDA-Public Use
  Company Number: 2007SP020299

PATIENT
  Age: 52 Year
  Sex: Female

DRUGS (17)
  1. PEG-INTRON [Suspect]
     Indication: HEPATITIS C
     Dosage: 64 MCG; QW; SC
     Route: 058
     Dates: start: 20070822, end: 20070912
  2. RIBAVIRIN [Suspect]
     Indication: HEPATITIS C
     Dosage: 400 MG; BID; PO
     Route: 048
     Dates: start: 20070822, end: 20070915
  3. ADDERALL 10 [Concomitant]
  4. VITAMIN CAP [Concomitant]
  5. METAMUCIL /00091301/ [Concomitant]
  6. PEPCID AC [Concomitant]
  7. CALCIUM [Concomitant]
  8. MOTRIN [Concomitant]
  9. LACTAID [Concomitant]
  10. MECLIZINE [Concomitant]
  11. PARACETAMOL [Concomitant]
  12. EXCEDRIN (MIGRAINE) [Concomitant]
  13. ACIDOPHILUS [Concomitant]
  14. MIDRIN /00450801/ [Concomitant]
  15. FLUOXETINE /00724402/ [Concomitant]
  16. LUNESTA [Concomitant]
  17. VITAMIN C /00008001/ [Concomitant]

REACTIONS (6)
  - CONDITION AGGRAVATED [None]
  - DEHYDRATION [None]
  - DEPRESSION [None]
  - INCORRECT DOSE ADMINISTERED [None]
  - MIGRAINE [None]
  - SUICIDAL IDEATION [None]
